FAERS Safety Report 9964463 (Version 1)
Quarter: 2014Q1

REPORT INFORMATION
  Report Type: Spontaneous
  Country: US (occurrence: US)
  Receive Date: 20140305
  Receipt Date: 20140305
  Transmission Date: 20141002
  Serious: No
  Sender: FDA-Public Use
  Company Number: US-TEVA-461876USA

PATIENT
  Sex: Male

DRUGS (1)
  1. QNASL [Suspect]

REACTIONS (1)
  - Sneezing [Unknown]
